FAERS Safety Report 8967101 (Version 2)
Quarter: 2016Q3

REPORT INFORMATION
  Report Type: Spontaneous
  Country: IT (occurrence: IT)
  Receive Date: 20121214
  Receipt Date: 20160706
  Transmission Date: 20161109
  Serious: Yes (Hospitalization)
  Sender: FDA-Public Use
  Company Number: IT-MYLANLABS-2012S1025003

PATIENT

DRUGS (1)
  1. ARKOLAMYL 10 MG ORODISPERSIBLE TABLETS [Suspect]
     Active Substance: OLANZAPINE
     Dosage: 28 DF,TOTAL
     Route: 048
     Dates: start: 20121106, end: 20121106

REACTIONS (4)
  - Drug abuse [Unknown]
  - Toxicity to various agents [Unknown]
  - Overdose [Unknown]
  - Sopor [Unknown]

NARRATIVE: CASE EVENT DATE: 20121106
